FAERS Safety Report 9274533 (Version 1)
Quarter: 2013Q2

REPORT INFORMATION
  Report Type: Spontaneous
  Country: GB (occurrence: GB)
  Receive Date: 20130507
  Receipt Date: 20130507
  Transmission Date: 20140414
  Serious: Yes (Hospitalization, Other)
  Sender: FDA-Public Use
  Company Number: GB-009507513-1305GBR001197

PATIENT
  Sex: Female

DRUGS (1)
  1. PROPECIA 1MG FILM-COATED TABLET [Suspect]
     Indication: PRODUCT USED FOR UNKNOWN INDICATION
     Dosage: 5MG FOR 7 WEEKS
     Route: 048

REACTIONS (4)
  - Renal failure [Recovered/Resolved]
  - Blindness transient [Recovered/Resolved]
  - Accidental exposure to product [Recovered/Resolved]
  - Drug dispensing error [Unknown]
